FAERS Safety Report 8554289-8 (Version None)
Quarter: 2012Q3

REPORT INFORMATION
  Report Type: 
  Country: None (occurrence: None)
  Receive Date: 20120731
  Receipt Date: 20120718
  Transmission Date: 20120928
  Serious: Yes (Hospitalization, Other)
  Sender: FDA-Public Use
  Company Number: JP-ROCHE-1091649

PATIENT
  Sex: Male
  Weight: 50 kg

DRUGS (24)
  1. ACTEMRA [Suspect]
     Route: 041
     Dates: start: 20080807, end: 20080807
  2. PREDNISOLONE [Concomitant]
     Route: 048
     Dates: start: 20080515, end: 20080708
  3. ACTEMRA [Suspect]
     Route: 041
     Dates: start: 20081127, end: 20081127
  4. PROGRAF [Concomitant]
     Route: 048
     Dates: start: 20090609, end: 20090707
  5. ACTEMRA [Suspect]
     Route: 041
     Dates: start: 20080612, end: 20080612
  6. ACTEMRA [Suspect]
     Route: 041
     Dates: start: 20080711, end: 20080711
  7. ACTEMRA [Suspect]
     Route: 041
     Dates: start: 20080904, end: 20080904
  8. METHOTREXATE [Suspect]
     Indication: PRODUCT USED FOR UNKNOWN INDICATION
     Dosage: DOSAGE IS UNCERTAIN.
     Route: 048
  9. PREDNISOLONE [Concomitant]
     Route: 048
     Dates: start: 20080806, end: 20080904
  10. PREDNISOLONE [Concomitant]
     Route: 048
     Dates: start: 20081003, end: 20081030
  11. ACTEMRA [Suspect]
     Route: 041
     Dates: start: 20081225, end: 20081225
  12. ACTEMRA [Suspect]
     Route: 041
     Dates: start: 20090217, end: 20090217
  13. PROGRAF [Concomitant]
     Indication: RHEUMATOID ARTHRITIS
     Route: 048
     Dates: end: 20090608
  14. LOXONIN [Concomitant]
     Indication: RHEUMATOID ARTHRITIS
     Route: 048
     Dates: start: 20080228
  15. ACTEMRA [Suspect]
     Indication: RHEUMATOID ARTHRITIS
     Route: 041
     Dates: start: 20080515, end: 20080515
  16. ACTEMRA [Suspect]
     Route: 041
     Dates: start: 20081030, end: 20081030
  17. PREDNISOLONE [Concomitant]
     Route: 048
     Dates: start: 20080709, end: 20080805
  18. PREDNISOLONE [Concomitant]
     Route: 048
     Dates: start: 20080905, end: 20081002
  19. ACTEMRA [Suspect]
     Route: 041
     Dates: start: 20090317, end: 20090317
  20. ACTEMRA [Suspect]
     Route: 041
     Dates: start: 20090414, end: 20090414
  21. ACTEMRA [Suspect]
     Route: 041
     Dates: start: 20090512, end: 20100402
  22. ACTEMRA [Suspect]
     Route: 041
     Dates: start: 20081002, end: 20081002
  23. ACTEMRA [Suspect]
     Route: 041
     Dates: start: 20090122, end: 20090122
  24. PREDNISOLONE [Concomitant]
     Indication: RHEUMATOID ARTHRITIS
     Route: 048
     Dates: start: 20080415, end: 20080514

REACTIONS (6)
  - DIALYSIS [None]
  - EYE INFECTION FUNGAL [None]
  - LIVER DISORDER [None]
  - SEPTIC SHOCK [None]
  - JAUNDICE [None]
  - NECROTISING FASCIITIS [None]
